FAERS Safety Report 4983358-4 (Version None)
Quarter: 2006Q2

REPORT INFORMATION
  Report Type: 
  Country: None (occurrence: None)
  Receive Date: 20060426
  Receipt Date: 20051111
  Transmission Date: 20061013
  Serious: Yes (Hospitalization)
  Sender: FDA-Public Use
  Company Number: US-MERCK-0511USA02060

PATIENT
  Age: 76 Year
  Sex: Male
  Weight: 81 kg

DRUGS (30)
  1. VIOXX [Suspect]
     Indication: ARTHRALGIA
     Route: 048
     Dates: start: 20000101
  2. VIOXX [Suspect]
     Route: 048
     Dates: start: 20001212
  3. VIOXX [Suspect]
     Route: 065
     Dates: start: 20000101
  4. VIOXX [Suspect]
     Route: 065
     Dates: end: 20040101
  5. VIOXX [Suspect]
     Route: 048
     Dates: start: 20020813
  6. VIOXX [Suspect]
     Route: 048
     Dates: start: 20040121
  7. VIOXX [Suspect]
     Indication: ARTHRITIS
     Route: 048
     Dates: start: 20000101
  8. VIOXX [Suspect]
     Route: 048
     Dates: start: 20001212
  9. VIOXX [Suspect]
     Route: 065
     Dates: start: 20000101
  10. VIOXX [Suspect]
     Route: 065
     Dates: end: 20040101
  11. VIOXX [Suspect]
     Route: 048
     Dates: start: 20020813
  12. VIOXX [Suspect]
     Route: 048
     Dates: start: 20040121
  13. IBUPROFEN [Concomitant]
     Route: 065
     Dates: start: 19990101, end: 20000101
  14. LEVOXYL [Concomitant]
     Indication: HYPOTHYROIDISM
     Route: 048
  15. LEVOXYL [Concomitant]
     Route: 065
  16. HUMULIN N [Concomitant]
     Indication: DIABETES MELLITUS
     Route: 058
  17. HUMULIN N [Concomitant]
     Route: 058
  18. PRINIVIL [Concomitant]
     Indication: HYPERTENSION
     Route: 065
     Dates: start: 20020101
  19. ZESTRIL [Concomitant]
     Indication: HYPERTENSION
     Route: 048
     Dates: start: 20020101, end: 20030101
  20. ZESTRIL [Concomitant]
     Route: 065
     Dates: start: 20000101
  21. SYNTHROID [Concomitant]
     Indication: HYPOTHYROIDISM
     Route: 065
  22. METOPROLOL TARTRATE [Concomitant]
     Indication: HYPERTENSION
     Route: 048
  23. NORVASC [Concomitant]
     Indication: HYPERTENSION
     Route: 048
     Dates: start: 20030101
  24. NORVASC [Concomitant]
     Route: 048
     Dates: start: 20040121
  25. TYLENOL (CAPLET) [Concomitant]
     Route: 065
     Dates: start: 19990101
  26. DIAZIDE [Concomitant]
     Indication: HYPERTENSION
     Route: 048
     Dates: start: 20000101, end: 20021115
  27. DIAZIDE [Concomitant]
     Route: 048
     Dates: start: 20030501
  28. HUMULIN N [Concomitant]
     Route: 058
     Dates: start: 20020813
  29. LOPID [Concomitant]
     Indication: BLOOD TRIGLYCERIDES ABNORMAL
     Route: 048
  30. DEPO-MEDROL [Concomitant]
     Route: 065
     Dates: start: 20001212

REACTIONS (30)
  - ANAEMIA [None]
  - ARTHRALGIA [None]
  - ATRIAL FIBRILLATION [None]
  - BLOOD CREATININE INCREASED [None]
  - BRADYCARDIA [None]
  - CARDIAC FAILURE CONGESTIVE [None]
  - CATARACT [None]
  - CEREBROVASCULAR ACCIDENT [None]
  - CLOSTRIDIUM DIFFICILE TOXIN TEST POSITIVE [None]
  - CONVULSION [None]
  - CYST [None]
  - DRUG INEFFECTIVE [None]
  - EXCORIATION [None]
  - HYPERLIPIDAEMIA [None]
  - HYPERTRIGLYCERIDAEMIA [None]
  - HYPOAESTHESIA [None]
  - IMMUNODEFICIENCY [None]
  - INCONTINENCE [None]
  - INTERNATIONAL NORMALISED RATIO [None]
  - INTERNATIONAL NORMALISED RATIO INCREASED [None]
  - OBESITY [None]
  - OEDEMA PERIPHERAL [None]
  - ORAL CANDIDIASIS [None]
  - PNEUMONIA PNEUMOCOCCAL [None]
  - PULMONARY MASS [None]
  - PYREXIA [None]
  - RENAL FAILURE [None]
  - SOMNOLENCE [None]
  - URINARY TRACT INFECTION [None]
  - VASCULAR PSEUDOANEURYSM [None]
